FAERS Safety Report 14076237 (Version 1)
Quarter: 2017Q4

REPORT INFORMATION
  Report Type: Report from Study
  Country: TR (occurrence: TR)
  Receive Date: 20171011
  Receipt Date: 20171011
  Transmission Date: 20180321
  Serious: Yes (Death, Other)
  Sender: FDA-Public Use
  Company Number: TR-BAYER-2017-189406

PATIENT
  Age: 38 Year
  Sex: Female

DRUGS (1)
  1. BETAFERON [Suspect]
     Active Substance: INTERFERON BETA-1B
     Indication: MULTIPLE SCLEROSIS
     Dosage: UNK
     Route: 058
     Dates: start: 20170424, end: 20171002

REACTIONS (2)
  - Death [Fatal]
  - Syncope [None]

NARRATIVE: CASE EVENT DATE: 20171002
